FAERS Safety Report 15125565 (Version 1)
Quarter: 2018Q3

REPORT INFORMATION
  Report Type: Spontaneous
  Country: US (occurrence: US)
  Receive Date: 20180710
  Receipt Date: 20180710
  Transmission Date: 20181010
  Serious: Yes (Hospitalization)
  Sender: FDA-Public Use
  Company Number: US-SA-2018SA183907

PATIENT
  Sex: Female
  Weight: 40.82 kg

DRUGS (1)
  1. PRALUENT [Suspect]
     Active Substance: ALIROCUMAB
     Indication: HYPERLIPIDAEMIA
     Dosage: 75 MG, QOW
     Route: 058

REACTIONS (5)
  - Coronary artery occlusion [Unknown]
  - Aortic aneurysm [Unknown]
  - Mitral valve stenosis [Unknown]
  - Weight decreased [Unknown]
  - Pain [Unknown]
